FAERS Safety Report 6425743-X (Version None)
Quarter: 2009Q4

REPORT INFORMATION
  Report Type: 
  Country: None (occurrence: None)
  Receive Date: 20091029
  Receipt Date: 20091016
  Transmission Date: 20100525
  Serious: Yes (Death)
  Sender: FDA-Public Use
  Company Number: 2009AC000067

PATIENT
  Age: 45 Year
  Sex: Female

DRUGS (17)
  1. DIGOXIN [Suspect]
     Dosage: 125 MCG; QD; PO
     Route: 048
     Dates: start: 20000101
  2. LASIX [Concomitant]
  3. TOPROL-XL [Concomitant]
  4. LISINOPRIL [Concomitant]
  5. ZOLOFT [Concomitant]
  6. AMIODARONE HCL [Concomitant]
  7. ASPIRIN [Concomitant]
  8. COREG [Concomitant]
  9. SULFASALAZINE [Concomitant]
  10. LEVOTHYROXINE SODIUM [Concomitant]
  11. SPIRIVA [Concomitant]
  12. NASONEX [Concomitant]
  13. ALVERT [Concomitant]
  14. COQ10 [Concomitant]
  15. CALCIUM [Concomitant]
  16. MAGNESIUM [Concomitant]
  17. COUMADIN [Concomitant]

REACTIONS (27)
  - ABASIA [None]
  - ANXIETY [None]
  - CARDIAC FAILURE CONGESTIVE [None]
  - CARDIOACTIVE DRUG LEVEL INCREASED [None]
  - COLITIS [None]
  - CONGESTIVE CARDIOMYOPATHY [None]
  - DEHYDRATION [None]
  - DEPRESSION [None]
  - ECONOMIC PROBLEM [None]
  - EMPHYSEMA [None]
  - HEPATIC CONGESTION [None]
  - IMPAIRED WORK ABILITY [None]
  - INTRACARDIAC THROMBUS [None]
  - LOSS OF CONSCIOUSNESS [None]
  - MACROANGIOPATHY [None]
  - MULTIPLE INJURIES [None]
  - MYOCARDIAL FIBROSIS [None]
  - PERICARDIAL EFFUSION [None]
  - PROCEDURAL DIZZINESS [None]
  - PROCEDURAL HYPOTENSION [None]
  - PROTHROMBIN TIME PROLONGED [None]
  - PULMONARY OEDEMA [None]
  - RENAL FAILURE [None]
  - RESPIRATORY ARREST [None]
  - SURGERY [None]
  - VENTRICULAR FIBRILLATION [None]
  - VENTRICULAR TACHYCARDIA [None]
